FAERS Safety Report 5331243-0 (Version None)
Quarter: 2007Q2

REPORT INFORMATION
  Report Type: 
  Country: None (occurrence: None)
  Receive Date: 20070522
  Receipt Date: 20070507
  Transmission Date: 20071010
  Serious: Yes (Other)
  Sender: FDA-Public Use
  Company Number: A0640081A

PATIENT
  Age: 58 Year
  Sex: Male

DRUGS (10)
  1. WELLBUTRIN [Suspect]
     Indication: ANXIETY
     Dosage: 100MG PER DAY
     Route: 048
     Dates: start: 20070101, end: 20070128
  2. WELLBUTRIN XL [Suspect]
     Indication: ANXIETY
     Dosage: 150MG PER DAY
     Route: 048
     Dates: start: 20070129, end: 20070101
  3. PRILOSEC [Concomitant]
  4. DIGOXIN [Concomitant]
  5. LOPRESSOR [Concomitant]
  6. DYAZIDE [Concomitant]
  7. REQUIP [Concomitant]
  8. AVAPRO [Concomitant]
  9. ECOTRIN [Concomitant]
  10. PLAVIX [Concomitant]

REACTIONS (6)
  - EMOTIONAL DISTRESS [None]
  - GLOSSODYNIA [None]
  - MOUTH ULCERATION [None]
  - ORAL PAIN [None]
  - TONGUE DISORDER [None]
  - TONGUE ULCERATION [None]
